FAERS Safety Report 12541092 (Version 1)
Quarter: 2016Q3

REPORT INFORMATION
  Report Type: Report from Study
  Country: US (occurrence: US)
  Receive Date: 20160708
  Receipt Date: 20160708
  Transmission Date: 20161109
  Serious: Yes (Other)
  Sender: FDA-Public Use
  Company Number: US-KADMON PHARMACEUTICALS, LLC-KAD201607-002437

PATIENT

DRUGS (3)
  1. RIBAVIRIN. [Suspect]
     Active Substance: RIBAVIRIN
     Indication: HEPATITIS C
  2. ABT-493 [Suspect]
     Active Substance: GLECAPREVIR
     Indication: HEPATITIS C
  3. ABT-530 [Suspect]
     Active Substance: PIBRENTASVIR
     Indication: HEPATITIS C

REACTIONS (1)
  - Delusional disorder, unspecified type [Unknown]
